FAERS Safety Report 21601277 (Version 5)
Quarter: 2023Q1

REPORT INFORMATION
  Report Type: Report from Study
  Country: FR (occurrence: FR)
  Receive Date: 20221116
  Receipt Date: 20230209
  Transmission Date: 20230418
  Serious: Yes (Hospitalization, Other)
  Sender: FDA-Public Use
  Company Number: FR-002147023-NVSC2022FR240420

PATIENT
  Sex: Male
  Weight: 57 kg

DRUGS (6)
  1. PLUVICTO [Suspect]
     Active Substance: LUTETIUM LU-177 VIPIVOTIDE TETRAXETAN
     Indication: Prostate cancer metastatic
     Dosage: 7100 MBQ (ONCE) (1ST CYCLE)
     Route: 042
     Dates: start: 20220818, end: 20220818
  2. PLUVICTO [Suspect]
     Active Substance: LUTETIUM LU-177 VIPIVOTIDE TETRAXETAN
     Dosage: 6043 MBQ (ONCE) (2ND CYCLE)
     Route: 042
     Dates: start: 20221004, end: 20221004
  3. PLUVICTO [Suspect]
     Active Substance: LUTETIUM LU-177 VIPIVOTIDE TETRAXETAN
     Dosage: 6076 MBQ (ONCE) (3RD CYCLE)
     Route: 042
     Dates: start: 20221208, end: 20221208
  4. DEXAMETHASONE [Concomitant]
     Active Substance: DEXAMETHASONE
     Indication: Prostate cancer
     Dosage: 0.5 MG, QD
     Route: 065
  5. CALCIUM [Concomitant]
     Active Substance: CALCIUM
     Indication: Prostate cancer
     Dosage: 300 MG, QD
     Route: 065
  6. ENANTONE LP [Concomitant]
     Active Substance: LEUPROLIDE ACETATE
     Indication: Prostate cancer
     Dosage: 11.25 MG, Q3MO
     Route: 065

REACTIONS (7)
  - Febrile neutropenia [Recovered/Resolved]
  - Leukopenia [Unknown]
  - Neutropenia [Unknown]
  - Pneumonia [Unknown]
  - Cough [Unknown]
  - Pyrexia [Unknown]
  - Underdose [Unknown]

NARRATIVE: CASE EVENT DATE: 20221017
